FAERS Safety Report 21251306 (Version 1)
Quarter: 2022Q3

REPORT INFORMATION
  Report Type: Other
  Country: US (occurrence: None)
  Receive Date: 20220825
  Receipt Date: 20220825
  Transmission Date: 20221027
  Serious: Yes (Other)
  Sender: FDA-Public Use
  Company Number: US-Inventia-000204

PATIENT
  Age: 67 Year
  Sex: Female

DRUGS (1)
  1. OLMESARTAN [Suspect]
     Active Substance: OLMESARTAN
     Indication: Product used for unknown indication

REACTIONS (4)
  - Gastric mucosal hypertrophy [Unknown]
  - Gastric polyps [Unknown]
  - Chronic gastritis [Unknown]
  - Intestinal metaplasia [Unknown]
